FAERS Safety Report 26045192 (Version 1)
Quarter: 2025Q4

REPORT INFORMATION
  Report Type: Spontaneous
  Country: AU (occurrence: AU)
  Receive Date: 20251114
  Receipt Date: 20251114
  Transmission Date: 20260117
  Serious: Yes (Other)
  Sender: ALEXION PHARMACEUTICALS
  Company Number: AU-ASTRAZENECA-202511ASI004553AU

PATIENT
  Age: 73 Year
  Sex: Male

DRUGS (7)
  1. DURVALUMAB [Suspect]
     Active Substance: DURVALUMAB
     Indication: Lung adenocarcinoma stage III
     Route: 065
  2. CARBOPLATIN [Suspect]
     Active Substance: CARBOPLATIN
     Route: 065
  3. PERINDOPRIL ARGININE [Suspect]
     Active Substance: PERINDOPRIL ARGININE
     Dosage: TABLET, QD
  4. AMLODIPINE [Suspect]
     Active Substance: AMLODIPINE BESYLATE
     Dosage: 5 MILLIGRAM, QD
  5. APIXABAN [Concomitant]
     Active Substance: APIXABAN
     Dosage: 5 MILLIGRAM, BID
     Route: 065
  6. ATORVASTATIN [Concomitant]
     Active Substance: ATORVASTATIN
     Dosage: 40 MILLIGRAM, QD
     Route: 065
  7. ATENOLOL [Concomitant]
     Active Substance: ATENOLOL
     Dosage: 25 MILLIGRAM, QD
     Route: 065

REACTIONS (1)
  - Hypothyroid myopathy [Unknown]
